FAERS Safety Report 8895349 (Version 4)
Quarter: 2012Q4

REPORT INFORMATION
  Report Type: 
  Country: US (occurrence: US)
  Receive Date: 20121108
  Receipt Date: 20121210
  Transmission Date: 20130627
  Serious: Yes (Other)
  Sender: FDA-Public Use
  Company Number: US-PFIZER INC-2012277566

PATIENT
  Age: 8 Year
  Sex: Male

DRUGS (2)
  1. EPIPEN [Suspect]
     Indication: FOOD ALLERGY
     Dosage: UNK
     Route: 065
     Dates: start: 20121022
  2. BENADRYL [Concomitant]
     Indication: ITCHY THROAT
     Dosage: UNK
     Dates: start: 20121022

REACTIONS (4)
  - Vision blurred [Unknown]
  - Abdominal pain upper [Unknown]
  - Sinusitis [Unknown]
  - Dizziness [Unknown]
